FAERS Safety Report 12188442 (Version 2)
Quarter: 2016Q2

REPORT INFORMATION
  Report Type: Report from Study
  Country: CO (occurrence: CO)
  Receive Date: 20160317
  Receipt Date: 20160602
  Transmission Date: 20160815
  Serious: Yes (Death, Other)
  Sender: FDA-Public Use
  Company Number: CO-ASTRAZENECA-2016SE27626

PATIENT
  Age: 27257 Day
  Sex: Male

DRUGS (2)
  1. LOSARTAN. [Concomitant]
     Active Substance: LOSARTAN
     Dosage: 100.0MG UNKNOWN
     Route: 048
  2. BRILINTA [Suspect]
     Active Substance: TICAGRELOR
     Indication: INFARCTION
     Route: 048
     Dates: start: 20150206, end: 20160305

REACTIONS (2)
  - Cardio-respiratory arrest [Fatal]
  - Infarction [Unknown]

NARRATIVE: CASE EVENT DATE: 20160305
